FAERS Safety Report 19116166 (Version 1)
Quarter: 2021Q2

REPORT INFORMATION
  Report Type: Spontaneous
  Country: US (occurrence: US)
  Receive Date: 20210409
  Receipt Date: 20210409
  Transmission Date: 20210717
  Serious: No
  Sender: FDA-Public Use
  Company Number: US-GLAXOSMITHKLINE-US2021AMR073547

PATIENT
  Age: 69 Year
  Sex: Female

DRUGS (1)
  1. NUCALA [Suspect]
     Active Substance: MEPOLIZUMAB
     Indication: EOSINOPHILIC GRANULOMATOSIS WITH POLYANGIITIS
     Dosage: 300 MG, Z (EVERY 4 WEEKS)
     Route: 042

REACTIONS (4)
  - Herpes zoster [Recovering/Resolving]
  - Skin burning sensation [Not Recovered/Not Resolved]
  - Circumstance or information capable of leading to medication error [Unknown]
  - Back pain [Not Recovered/Not Resolved]

NARRATIVE: CASE EVENT DATE: 202103
